FAERS Safety Report 9182532 (Version 1)
Quarter: 2013Q1

REPORT INFORMATION
  Report Type: Spontaneous
  Country: US (occurrence: US)
  Receive Date: 20130322
  Receipt Date: 20130322
  Transmission Date: 20140127
  Serious: No
  Sender: FDA-Public Use
  Company Number: US-BRISTOL-MYERS SQUIBB COMPANY-16803926

PATIENT
  Age: 78 Year
  Sex: Female
  Weight: 51.25 kg

DRUGS (1)
  1. ERBITUX [Suspect]
     Indication: COLON CANCER STAGE IV

REACTIONS (3)
  - Rash pustular [Unknown]
  - Heart rate increased [Unknown]
  - Rash [Unknown]
